FAERS Safety Report 6918547-2 (Version None)
Quarter: 2010Q3

REPORT INFORMATION
  Report Type: 
  Country: None (occurrence: None)
  Receive Date: 20100811
  Receipt Date: 20100806
  Transmission Date: 20110219
  Serious: Yes (Death, Hospitalization)
  Sender: FDA-Public Use
  Company Number: GB-ASTRAZENECA-2010SE37091

PATIENT
  Age: 43 Year
  Sex: Female

DRUGS (7)
  1. ZOLADEX [Suspect]
     Indication: BREAST CANCER
     Route: 058
     Dates: start: 20100623
  2. FEMARA [Suspect]
     Indication: BREAST CANCER
     Route: 048
     Dates: start: 20100623
  3. ANTIEMETICS [Concomitant]
     Indication: BREAST CANCER
  4. CYCLOPHOSPHAMIDE [Concomitant]
     Indication: BREAST CANCER
     Route: 042
     Dates: start: 20100129, end: 20100518
  5. EPIRUBICIN [Concomitant]
     Indication: BREAST CANCER
     Route: 042
     Dates: start: 20100129, end: 20100518
  6. RADIOTHERAPY [Concomitant]
     Indication: BREAST CANCER
     Dates: start: 20100501, end: 20100601
  7. STEROIDS UNSPECIFIED [Concomitant]
     Indication: BREAST CANCER

REACTIONS (5)
  - ACUTE HEPATIC FAILURE [None]
  - CONTUSION [None]
  - DISSEMINATED INTRAVASCULAR COAGULATION [None]
  - HYPOPERFUSION [None]
  - PNEUMATIC COMPRESSION THERAPY [None]
